FAERS Safety Report 23241896 (Version 1)
Quarter: 2023Q4

REPORT INFORMATION
  Report Type: Spontaneous
  Country: CN (occurrence: CN)
  Receive Date: 20231129
  Receipt Date: 20231129
  Transmission Date: 20240110
  Serious: Yes (Hospitalization, Other)
  Sender: FDA-Public Use
  Company Number: CN-PFIZER INC-PV202300192574

PATIENT
  Age: 27 Year
  Sex: Female
  Weight: 61.5 kg

DRUGS (2)
  1. METHOTREXATE SODIUM [Suspect]
     Active Substance: METHOTREXATE SODIUM
     Indication: Abortion induced
     Dosage: 75 MG, 1X/DAY
     Route: 030
     Dates: start: 20231106, end: 20231106
  2. METHOTREXATE SODIUM [Suspect]
     Active Substance: METHOTREXATE SODIUM
     Dosage: 75 MG, 1X/DAY
     Route: 030
     Dates: start: 20231112, end: 20231112

REACTIONS (8)
  - Hepatocellular injury [Recovering/Resolving]
  - Pyrexia [Unknown]
  - Nasal congestion [Unknown]
  - Cough [Unknown]
  - Productive cough [Unknown]
  - Upper respiratory tract infection [Unknown]
  - Asthenia [Unknown]
  - Off label use [Unknown]

NARRATIVE: CASE EVENT DATE: 20231106
